FAERS Safety Report 25128613 (Version 1)
Quarter: 2025Q1

REPORT INFORMATION
  Report Type: Other
  Country: CN (occurrence: CN)
  Receive Date: 20250327
  Receipt Date: 20250327
  Transmission Date: 20250408
  Serious: Yes (Death, Hospitalization)
  Sender: ANI
  Company Number: CN-ANIPHARMA-016160

PATIENT
  Age: 33 Year

DRUGS (17)
  1. CYCLOPHOSPHAMIDE [Suspect]
     Active Substance: CYCLOPHOSPHAMIDE
     Indication: Triple negative breast cancer
     Dates: start: 202007
  2. EPIRUBICIN [Concomitant]
     Active Substance: EPIRUBICIN
     Indication: Triple negative breast cancer
     Dates: start: 202007
  3. PACLITAXEL [Concomitant]
     Active Substance: PACLITAXEL
     Indication: Triple negative breast cancer
     Dates: start: 202007
  4. CAPECITABINE [Concomitant]
     Active Substance: CAPECITABINE
     Indication: Triple negative breast cancer
  5. VINORELBINE [Concomitant]
     Active Substance: VINORELBINE TARTRATE
     Indication: Triple negative breast cancer
  6. CISPLATIN [Concomitant]
     Active Substance: CISPLATIN
     Indication: Triple negative breast cancer
  7. CATEQUENTINIB [Concomitant]
     Active Substance: CATEQUENTINIB
     Indication: Triple negative breast cancer
  8. BEVACIZUMAB [Concomitant]
     Active Substance: BEVACIZUMAB
     Indication: Triple negative breast cancer
     Dates: start: 202212
  9. ERIBULIN [Concomitant]
     Active Substance: ERIBULIN
     Indication: Triple negative breast cancer
     Dates: start: 202212
  10. GEMCITABINE [Concomitant]
     Active Substance: GEMCITABINE
     Indication: Triple negative breast cancer
     Dates: start: 202212
  11. CARBOPLATIN [Concomitant]
     Active Substance: CARBOPLATIN
     Indication: Triple negative breast cancer
     Dates: start: 202212
  12. INVESTIGATIONAL PRODUCT [Concomitant]
     Active Substance: INVESTIGATIONAL PRODUCT
     Indication: Triple negative breast cancer
     Dates: start: 202212
  13. PEMBROLIZUMAB [Concomitant]
     Active Substance: PEMBROLIZUMAB
     Indication: Triple negative breast cancer
     Dates: start: 202304
  14. PACLITAXEL [Concomitant]
     Active Substance: PACLITAXEL
     Indication: Triple negative breast cancer
  15. CAPECITABINE [Concomitant]
     Active Substance: CAPECITABINE
     Indication: Triple negative breast cancer
  16. CISPLATIN [Concomitant]
     Active Substance: CISPLATIN
     Indication: Triple negative breast cancer
     Dates: start: 202304
  17. VINORELBINE [Concomitant]
     Active Substance: VINORELBINE TARTRATE
     Indication: Triple negative breast cancer
     Dates: start: 202304

REACTIONS (1)
  - Drug ineffective [Fatal]
